FAERS Safety Report 6356933-2 (Version None)
Quarter: 2009Q3

REPORT INFORMATION
  Report Type: 
  Country: None (occurrence: None)
  Receive Date: 20090915
  Receipt Date: 20090902
  Transmission Date: 20100115
  Serious: Yes (Other)
  Sender: FDA-Public Use
  Company Number: US-PFIZER INC-2009265932

PATIENT
  Sex: Male
  Weight: 65 kg

DRUGS (5)
  1. CHANTIX [Suspect]
     Indication: SMOKING CESSATION THERAPY
     Dosage: FREQUENCY: 2X/DAY,
     Route: 048
     Dates: start: 20090826
  2. RIBAVIRIN [Concomitant]
     Indication: HEPATITIS C
     Dosage: FREQUENCY: 5X/DAY,
     Route: 048
     Dates: start: 19870101
  3. PEGASYS [Concomitant]
     Indication: HEPATITIS C
     Dosage: FREQUENCY: ONCE A WEEK,
  4. DETROL LA [Concomitant]
     Indication: HYPERTONIC BLADDER
     Route: 048
     Dates: start: 20090901
  5. MIRTAZAPINE [Concomitant]
     Indication: DEPRESSION
     Route: 048

REACTIONS (1)
  - HAEMATOCHEZIA [None]
